FAERS Safety Report 7940077-X (Version None)
Quarter: 2011Q4

REPORT INFORMATION
  Report Type: 
  Country: None (occurrence: None)
  Receive Date: 20111125
  Receipt Date: 20111122
  Transmission Date: 20120403
  Serious: Yes (Death, Other)
  Sender: FDA-Public Use
  Company Number: PHHY2011KR102294

PATIENT
  Sex: Male
  Weight: 72 kg

DRUGS (4)
  1. GSTER [Concomitant]
     Indication: PROPHYLAXIS
     Dosage: 20 MG, DAILY
     Dates: start: 20111026, end: 20111028
  2. EXJADE [Suspect]
     Indication: APLASTIC ANAEMIA
     Dosage: 1000 MG, DAILY
     Route: 048
     Dates: start: 20110817, end: 20111026
  3. MANES [Concomitant]
     Indication: SUPPLEMENTATION THERAPY
     Dosage: 1 DF, DAILY
     Dates: start: 20111026, end: 20111027
  4. SANDIMMUNE [Concomitant]
     Indication: PROPHYLAXIS
     Dosage: 100 MG, DAILY
     Dates: start: 20111026, end: 20111028

REACTIONS (5)
  - SEPTIC SHOCK [None]
  - ARTHROPOD BITE [None]
  - DEATH [None]
  - PNEUMONIA [None]
  - PYREXIA [None]
